FAERS Safety Report 7145942-1 (Version None)
Quarter: 2010Q4

REPORT INFORMATION
  Report Type: 
  Country: None (occurrence: None)
  Receive Date: 20101208
  Receipt Date: 20100728
  Transmission Date: 20110411
  Serious: No
  Sender: FDA-Public Use
  Company Number: US-ABBOTT-10P-163-0661153-00

PATIENT
  Age: 50 Year
  Sex: Female
  Weight: 79.45 kg

DRUGS (1)
  1. ERYTHROMYCIN ETHYLSUCCINATE [Suspect]
     Indication: PROPHYLAXIS
     Dosage: 200MG/5ML
     Route: 048
     Dates: start: 20100727, end: 20100728

REACTIONS (2)
  - DYSPNOEA [None]
  - PALPITATIONS [None]
